FAERS Safety Report 24699445 (Version 1)
Quarter: 2024Q4

REPORT INFORMATION
  Report Type: Spontaneous
  Country: JP (occurrence: JP)
  Receive Date: 20241205
  Receipt Date: 20241205
  Transmission Date: 20250115
  Serious: Yes (Death, Other)
  Sender: GLAXOSMITHKLINE
  Company Number: JP-GSK-JP2024146152

PATIENT

DRUGS (9)
  1. NUCALA [Suspect]
     Active Substance: MEPOLIZUMAB
     Indication: Systemic mastocytosis
     Dosage: 300 MG
     Route: 058
  2. NUCALA [Suspect]
     Active Substance: MEPOLIZUMAB
     Indication: Eosinophil count increased
  3. PREDONINE [Concomitant]
     Active Substance: PREDNISOLONE
     Indication: Systemic mastocytosis
     Dosage: 60 MG
  4. PREDONINE [Concomitant]
     Active Substance: PREDNISOLONE
     Indication: Eosinophil count increased
     Dosage: 20 MG
  5. PREDONINE [Concomitant]
     Active Substance: PREDNISOLONE
     Dosage: 30 MG
  6. PREDONINE [Concomitant]
     Active Substance: PREDNISOLONE
     Dosage: 20 MG
  7. METHYLPREDNISOLONE [Concomitant]
     Active Substance: METHYLPREDNISOLONE
     Dosage: 125 MG
  8. METHYLPREDNISOLONE [Concomitant]
     Active Substance: METHYLPREDNISOLONE
     Dosage: 40 MG
  9. HYDROXYUREA [Concomitant]
     Active Substance: HYDROXYUREA
     Dosage: UNK

REACTIONS (4)
  - Death [Fatal]
  - Product use in unapproved indication [Unknown]
  - Therapeutic response unexpected [Unknown]
  - Off label use [Unknown]
